FAERS Safety Report 16824641 (Version 1)
Quarter: 2019Q3

REPORT INFORMATION
  Report Type: Spontaneous
  Country: US (occurrence: US)
  Receive Date: 20190918
  Receipt Date: 20190918
  Transmission Date: 20191005
  Serious: Yes (Other)
  Sender: FDA-Public Use
  Company Number: US-ANIPHARMA-2019-US-017475

PATIENT
  Sex: Female

DRUGS (2)
  1. ANASTROZOLE. [Suspect]
     Active Substance: ANASTROZOLE
     Indication: BREAST CANCER
     Dosage: UNK
     Route: 065
     Dates: start: 2013
  2. TAMOXIFEN [Suspect]
     Active Substance: TAMOXIFEN
     Dosage: UNK
     Route: 065

REACTIONS (12)
  - Diverticulitis [Unknown]
  - Wrist fracture [Unknown]
  - Back disorder [Unknown]
  - Gastrooesophageal reflux disease [Unknown]
  - Fall [Unknown]
  - Barrett^s oesophagus [Unknown]
  - Nephrolithiasis [Unknown]
  - Breast cancer metastatic [Unknown]
  - Uterine disorder [Unknown]
  - Disease progression [Unknown]
  - Osteopenia [Not Recovered/Not Resolved]
  - Uterine cancer [Unknown]
